FAERS Safety Report 23293435 (Version 1)
Quarter: 2023Q4

REPORT INFORMATION
  Report Type: Spontaneous
  Country: US (occurrence: US)
  Receive Date: 20231213
  Receipt Date: 20231213
  Transmission Date: 20240110
  Serious: Yes (Other)
  Sender: FDA-Public Use
  Company Number: US-SUN PHARMACEUTICAL INDUSTRIES LTD-2023R1-423529

PATIENT
  Sex: Female

DRUGS (9)
  1. METOPROLOL [Suspect]
     Active Substance: METOPROLOL
     Indication: Product used for unknown indication
     Route: 065
  2. ORENITRAM [Suspect]
     Active Substance: TREPROSTINIL
     Indication: Pulmonary arterial hypertension
     Dosage: UNK
     Route: 048
     Dates: start: 2023
  3. TREPROSTINIL [Suspect]
     Active Substance: TREPROSTINIL
     Indication: Pulmonary arterial hypertension
     Dosage: 1 MILLIGRAM, TID
     Route: 048
     Dates: start: 2023
  4. TREPROSTINIL [Suspect]
     Active Substance: TREPROSTINIL
     Dosage: 1.625 MILLIGRAM
     Route: 048
     Dates: start: 2023, end: 2023
  5. TREPROSTINIL [Suspect]
     Active Substance: TREPROSTINIL
     Dosage: 1.25 MILLIGRAM, TID
     Route: 048
     Dates: start: 2023
  6. TREPROSTINIL [Suspect]
     Active Substance: TREPROSTINIL
     Dosage: 1.75 MILLIGRAM, TID
     Route: 048
     Dates: start: 2023
  7. TREPROSTINIL [Suspect]
     Active Substance: TREPROSTINIL
     Dosage: UNK
     Route: 048
     Dates: start: 2023
  8. SILDENAFIL CITRATE [Concomitant]
     Active Substance: SILDENAFIL CITRATE
     Indication: Product used for unknown indication
     Route: 065
  9. AMBRISENTAN [Concomitant]
     Active Substance: AMBRISENTAN
     Indication: Product used for unknown indication
     Route: 065

REACTIONS (23)
  - Pulmonary congestion [Unknown]
  - Nausea [Unknown]
  - Nasal congestion [Not Recovered/Not Resolved]
  - Palpitations [Not Recovered/Not Resolved]
  - Myalgia [Not Recovered/Not Resolved]
  - Headache [Not Recovered/Not Resolved]
  - Dyspnoea exertional [Not Recovered/Not Resolved]
  - Fluid retention [Unknown]
  - Cardiac disorder [Unknown]
  - Pulmonary congestion [Unknown]
  - Atrial fibrillation [Not Recovered/Not Resolved]
  - Throat tightness [Unknown]
  - Wheezing [Unknown]
  - Nasal congestion [Unknown]
  - Pain [Unknown]
  - Respiratory tract congestion [Unknown]
  - Nausea [Unknown]
  - Product dose omission issue [Unknown]
  - Pain in extremity [Unknown]
  - Arthralgia [Unknown]
  - Pain in jaw [Unknown]
  - Chest pain [Unknown]
  - Chest discomfort [Unknown]
